FAERS Safety Report 21232965 (Version 2)
Quarter: 2022Q3

REPORT INFORMATION
  Report Type: Spontaneous
  Country: US (occurrence: US)
  Receive Date: 20220819
  Receipt Date: 20220915
  Transmission Date: 20221027
  Serious: Yes (Other)
  Sender: FDA-Public Use
  Company Number: US-009507513-2208USA005784

PATIENT
  Sex: Male

DRUGS (3)
  1. KEYTRUDA [Suspect]
     Active Substance: PEMBROLIZUMAB
     Indication: Squamous cell carcinoma of head and neck
     Dosage: 200 MILLIGRAM, Q3W
     Route: 042
     Dates: start: 201709
  2. LEVOTHYROXINE [Concomitant]
     Active Substance: LEVOTHYROXINE
  3. ANDRODERM [Concomitant]
     Active Substance: TESTOSTERONE

REACTIONS (13)
  - Lung operation [Unknown]
  - Pulmonary mass [Unknown]
  - Skin wound [Unknown]
  - Feeling cold [Unknown]
  - Feeling hot [Unknown]
  - Pain [Unknown]
  - Musculoskeletal stiffness [Unknown]
  - Fatigue [Unknown]
  - Cough [Unknown]
  - Alopecia [Unknown]
  - Nerve injury [Unknown]
  - Sinusitis [Unknown]
  - Product use issue [Unknown]
